FAERS Safety Report 8322780-5 (Version None)
Quarter: 2012Q2

REPORT INFORMATION
  Report Type: 
  Country: None (occurrence: None)
  Receive Date: 20120430
  Receipt Date: 20120423
  Transmission Date: 20120825
  Serious: Yes (Other)
  Sender: FDA-Public Use
  Company Number: US-ASTRAZENECA-2012SE26576

PATIENT
  Age: 64 Year
  Sex: Male

DRUGS (1)
  1. CRESTOR [Suspect]
     Route: 048

REACTIONS (5)
  - SPEECH DISORDER [None]
  - CEREBROVASCULAR ACCIDENT [None]
  - CHROMOSOME ANALYSIS ABNORMAL [None]
  - CHRONIC MYELOID LEUKAEMIA [None]
  - ANAEMIA [None]
